FAERS Safety Report 9493156 (Version 3)
Quarter: 2014Q1

REPORT INFORMATION
  Report Type: Spontaneous
  Country: VE (occurrence: VE)
  Receive Date: 20130902
  Receipt Date: 20140214
  Transmission Date: 20141002
  Serious: Yes (Other)
  Sender: FDA-Public Use
  Company Number: VE-AMGEN-VENSP2013027675

PATIENT
  Age: 59 Year
  Sex: Female
  Weight: 70 kg

DRUGS (6)
  1. VECTIBIX [Suspect]
     Indication: ADENOCARCINOMA OF COLON
     Dosage: 420 MG, EVERY 15 DAYS
     Route: 042
     Dates: start: 20121018, end: 20140108
  2. VECTIBIX [Suspect]
     Indication: METASTASES TO LIVER
  3. IRINOTECAN [Concomitant]
     Indication: ADENOCARCINOMA OF COLON
     Dosage: 275 MG, EVERY 15 DAYS
  4. IRINOTECAN [Concomitant]
     Indication: METASTASES TO LIVER
  5. PALONOSETRON [Concomitant]
     Dosage: 0.25 MG, DAY 1 AND DAY 14 OF THE MONTH
  6. APREPITANT [Concomitant]
     Dosage: 125 MG,DAY 1 TO DAY 3 AND DAY 14 OF THE MONTH

REACTIONS (7)
  - Disease progression [Unknown]
  - Drug resistance [Unknown]
  - Dermatitis acneiform [Unknown]
  - Growth of eyelashes [Unknown]
  - Diarrhoea [Unknown]
  - Asthenia [Unknown]
  - Paronychia [Unknown]
